FAERS Safety Report 12067768 (Version 1)
Quarter: 2016Q1

REPORT INFORMATION
  Report Type: Spontaneous
  Country: US (occurrence: US)
  Receive Date: 20160211
  Receipt Date: 20160211
  Transmission Date: 20160526
  Serious: No
  Sender: FDA-Public Use
  Company Number: US-SMITH AND NEPHEW, INC-2015SMT00040

PATIENT
  Age: 86 Year
  Sex: Male
  Weight: 81.63 kg

DRUGS (3)
  1. REGRANEX [Suspect]
     Active Substance: BECAPLERMIN
     Indication: WOUND
     Dosage: 1 DOSAGE UNITS, 2X/DAY
     Route: 061
     Dates: start: 20150324, end: 20150401
  2. REGRANEX [Suspect]
     Active Substance: BECAPLERMIN
     Dosage: 1 DOSAGE UNITS, EVERY 48 HOURS
     Route: 061
     Dates: start: 20150408
  3. 31 UNSPECIFIED CONCOMITANT MEDICATIONS [Concomitant]

REACTIONS (3)
  - Erythema [Recovering/Resolving]
  - Skin exfoliation [Recovered/Resolved]
  - Inappropriate schedule of drug administration [Unknown]

NARRATIVE: CASE EVENT DATE: 2015
